FAERS Safety Report 12408121 (Version 2)
Quarter: 2016Q2

REPORT INFORMATION
  Report Type: Report from Study
  Country: JP (occurrence: JP)
  Receive Date: 20160526
  Receipt Date: 20160607
  Transmission Date: 20160815
  Serious: Yes (Hospitalization, Other)
  Sender: FDA-Public Use
  Company Number: JP-TAKEDA-2016TJP009440AA

PATIENT
  Age: 29 Year
  Sex: Female
  Weight: 52.1 kg

DRUGS (19)
  1. PREDNISOLONE TABLETS 5MG. [Suspect]
     Active Substance: PREDNISOLONE
     Dosage: 20 MG, QD
     Route: 048
     Dates: start: 20151202, end: 20151217
  2. PREDNISOLONE TABLETS 5MG. [Suspect]
     Active Substance: PREDNISOLONE
     Dosage: 15 MG, QD
     Route: 048
     Dates: start: 20151218, end: 20160114
  3. PENTASA [Concomitant]
     Active Substance: MESALAMINE
     Indication: CROHN^S DISEASE
     Dosage: 1000 MG, TID
     Route: 048
     Dates: start: 20160411
  4. BORRAGINOL A                       /07905801/ [Concomitant]
     Indication: HAEMORRHOIDS
     Dosage: UNK
     Route: 062
  5. VEDOLIZUMAB [Suspect]
     Active Substance: VEDOLIZUMAB
     Indication: CROHN^S DISEASE
     Dosage: 300 MG, UNK
     Route: 041
     Dates: start: 20151201
  6. VEDOLIZUMAB [Suspect]
     Active Substance: VEDOLIZUMAB
     Indication: CROHN^S DISEASE
     Dosage: 300 MG, UNK
     Route: 041
     Dates: start: 20150518, end: 20150629
  7. PREDNISOLONE TABLETS 5MG. [Suspect]
     Active Substance: PREDNISOLONE
     Indication: CROHN^S DISEASE
     Dosage: 15 MG, BID
     Route: 048
     Dates: start: 20151102, end: 20151115
  8. RINBETA PF [Concomitant]
     Active Substance: BETAMETHASONE SODIUM PHOSPHATE
     Indication: CHALAZION
     Dosage: UNK, QID
     Route: 047
     Dates: start: 20160329
  9. PREDNISOLONE TABLETS 5MG. [Suspect]
     Active Substance: PREDNISOLONE
     Dosage: 10 MG, QD
     Route: 048
     Dates: start: 20160115, end: 20160212
  10. PREDNISOLONE TABLETS 5MG. [Suspect]
     Active Substance: PREDNISOLONE
     Dosage: 2500 ?G, QD
     Route: 048
     Dates: start: 20160309, end: 20160405
  11. HEMOPORISON [Concomitant]
     Indication: HAEMORRHOIDS
     Dosage: UNK
     Route: 062
     Dates: start: 20150601
  12. PLACEBO [Suspect]
     Active Substance: UNSPECIFIED INGREDIENT
     Indication: CROHN^S DISEASE
     Dosage: 300 MG, UNK
     Route: 041
     Dates: start: 20150827, end: 20151020
  13. BETAMETHASONE BUTYRATE PROPIONATE [Concomitant]
     Active Substance: BETAMETHASONE BUTYRATE PROPIONATE
     Indication: CHRONIC ACTINIC DERMATITIS
     Dosage: UNK
     Route: 062
     Dates: start: 20150722
  14. CRAVIT [Concomitant]
     Active Substance: LEVOFLOXACIN
     Indication: CHALAZION
     Dosage: UNK, QID
     Route: 047
     Dates: start: 20160329
  15. MIYA-BM [Concomitant]
     Active Substance: CLOSTRIDIUM BUTYRICUM SPORES STRAIN M-55
     Indication: CROHN^S DISEASE
     Dosage: 20 MG, TID
     Route: 048
     Dates: start: 20150603
  16. PREDNISOLONE TABLETS 5MG. [Suspect]
     Active Substance: PREDNISOLONE
     Dosage: 25 MG, QD
     Route: 048
     Dates: start: 20151116, end: 20151201
  17. PREDNISOLONE. [Suspect]
     Active Substance: PREDNISOLONE
     Indication: CROHN^S DISEASE
     Dosage: 1 MG, QD
     Route: 048
     Dates: start: 20160406, end: 20160505
  18. PREDNISOLONE TABLETS 5MG. [Suspect]
     Active Substance: PREDNISOLONE
     Dosage: 5 MG, QD
     Route: 048
     Dates: start: 20160213, end: 20160308
  19. PARACETAMOL [Concomitant]
     Active Substance: ACETAMINOPHEN
     Indication: CROHN^S DISEASE
     Dosage: 500 MG, UNK
     Route: 048
     Dates: start: 20150519

REACTIONS (1)
  - Sepsis [Recovered/Resolved]

NARRATIVE: CASE EVENT DATE: 20160510
